FAERS Safety Report 8499163 (Version 2)
Quarter: 2014Q2

REPORT INFORMATION
  Report Type: Spontaneous
  Country: GB (occurrence: GB)
  Receive Date: 20120409
  Receipt Date: 20140630
  Transmission Date: 20141212
  Serious: Yes (Death)
  Sender: FDA-Public Use
  Company Number: GB-JNJFOC-20120403167

PATIENT
  Sex: 0

DRUGS (36)
  1. DOXORUBICIN [Suspect]
     Indication: HODGKIN^S DISEASE
     Route: 042
  2. DOXORUBICIN [Suspect]
     Indication: HODGKIN^S DISEASE
     Route: 042
  3. DOXORUBICIN [Suspect]
     Indication: HODGKIN^S DISEASE
     Route: 042
  4. DOXORUBICIN [Suspect]
     Indication: HODGKIN^S DISEASE
     Route: 042
  5. DOXORUBICIN [Suspect]
     Indication: HODGKIN^S DISEASE
     Route: 042
  6. DOXORUBICIN [Suspect]
     Indication: HODGKIN^S DISEASE
     Route: 042
  7. DOXORUBICIN [Suspect]
     Indication: HODGKIN^S DISEASE
     Route: 042
  8. DOXORUBICIN [Suspect]
     Indication: HODGKIN^S DISEASE
     Route: 042
  9. BLEOMYCIN [Suspect]
     Indication: HODGKIN^S DISEASE
     Route: 042
  10. BLEOMYCIN [Suspect]
     Indication: HODGKIN^S DISEASE
     Route: 042
  11. BLEOMYCIN [Suspect]
     Indication: HODGKIN^S DISEASE
     Route: 042
  12. BLEOMYCIN [Suspect]
     Indication: HODGKIN^S DISEASE
     Route: 042
  13. VINCRISTINE [Suspect]
     Indication: HODGKIN^S DISEASE
     Route: 042
  14. VINCRISTINE [Suspect]
     Indication: HODGKIN^S DISEASE
     Route: 042
  15. VINCRISTINE [Suspect]
     Indication: HODGKIN^S DISEASE
     Route: 042
  16. VINCRISTINE [Suspect]
     Indication: HODGKIN^S DISEASE
     Route: 042
  17. DACARBAZINE [Suspect]
     Indication: HODGKIN^S DISEASE
     Route: 042
  18. DACARBAZINE [Suspect]
     Indication: HODGKIN^S DISEASE
     Route: 042
  19. DACARBAZINE [Suspect]
     Indication: HODGKIN^S DISEASE
     Route: 042
  20. DACARBAZINE [Suspect]
     Indication: HODGKIN^S DISEASE
     Route: 042
  21. CHLORAMBUCIL [Suspect]
     Indication: HODGKIN^S DISEASE
     Route: 048
  22. CHLORAMBUCIL [Suspect]
     Indication: HODGKIN^S DISEASE
     Route: 048
  23. CHLORAMBUCIL [Suspect]
     Indication: HODGKIN^S DISEASE
     Route: 048
  24. CHLORAMBUCIL [Suspect]
     Indication: HODGKIN^S DISEASE
     Route: 048
  25. VINBLASTINE [Suspect]
     Indication: HODGKIN^S DISEASE
     Route: 042
  26. VINBLASTINE [Suspect]
     Indication: HODGKIN^S DISEASE
     Route: 042
  27. VINBLASTINE [Suspect]
     Indication: HODGKIN^S DISEASE
     Route: 042
  28. VINBLASTINE [Suspect]
     Indication: HODGKIN^S DISEASE
     Route: 042
  29. PROCARBAZINE [Suspect]
     Indication: HODGKIN^S DISEASE
     Route: 048
  30. PROCARBAZINE [Suspect]
     Indication: HODGKIN^S DISEASE
     Route: 048
  31. PROCARBAZINE [Suspect]
     Indication: HODGKIN^S DISEASE
     Route: 048
  32. PROCARBAZINE [Suspect]
     Indication: HODGKIN^S DISEASE
     Route: 048
  33. PREDNISOLONE [Suspect]
     Indication: HODGKIN^S DISEASE
     Route: 048
  34. PREDNISOLONE [Suspect]
     Indication: HODGKIN^S DISEASE
     Route: 048
  35. PREDNISOLONE [Suspect]
     Indication: HODGKIN^S DISEASE
     Route: 048
  36. PREDNISOLONE [Suspect]
     Indication: HODGKIN^S DISEASE
     Route: 048

REACTIONS (1)
  - Sepsis [Fatal]
